FAERS Safety Report 9311714 (Version 1)
Quarter: 2013Q1

REPORT INFORMATION
  Report Type: Spontaneous
  Country: US (occurrence: None)
  Receive Date: 20130103
  Receipt Date: 20130103
  Transmission Date: 20140127
  Serious: Yes (Hospitalization)
  Sender: FDA-Public Use
  Company Number: 140968-1

PATIENT
  Age: 54 Year
  Sex: Female
  Weight: 59 kg

DRUGS (1)
  1. LEUCOVORIN CALCIUM FOR INJ. 50MG - BEDFORD LABS, INC. [Suspect]
     Indication: COLORECTAL CANCER METASTATIC
     Dosage: DAY 1 EVERY 14 DAYS
     Route: 042
     Dates: start: 20120910, end: 20121008

REACTIONS (9)
  - Gastrointestinal stoma complication [None]
  - Hernial eventration [None]
  - Wound dehiscence [None]
  - Constipation [None]
  - Wound infection [None]
  - Haemoglobin decreased [None]
  - Haematocrit decreased [None]
  - Gamma-glutamyltransferase increased [None]
  - Blood alkaline phosphatase increased [None]
